FAERS Safety Report 12012664 (Version 2)
Quarter: 2019Q1

REPORT INFORMATION
  Report Type: Spontaneous
  Country: US (occurrence: US)
  Receive Date: 20160205
  Receipt Date: 20190103
  Transmission Date: 20190417
  Serious: No
  Sender: FDA-Public Use
  Company Number: US-PFIZER INC-2016015675

PATIENT
  Age: 68 Year
  Sex: Female

DRUGS (2)
  1. EFFEXOR XR [Suspect]
     Active Substance: VENLAFAXINE HYDROCHLORIDE
     Dosage: UNK
  2. MICARDIS [Suspect]
     Active Substance: TELMISARTAN
     Dosage: UNK

REACTIONS (1)
  - Drug hypersensitivity [Unknown]
